FAERS Safety Report 14661482 (Version 12)
Quarter: 2018Q3

REPORT INFORMATION
  Report Type: Report from Study
  Country: US (occurrence: US)
  Receive Date: 20180320
  Receipt Date: 20180919
  Transmission Date: 20181010
  Serious: Yes (Hospitalization)
  Sender: FDA-Public Use
  Company Number: US-ACTELION-A-NJ2018-169311

PATIENT
  Age: 73 Year
  Sex: Male
  Weight: 104.31 kg

DRUGS (7)
  1. VELETRI [Suspect]
     Active Substance: EPOPROSTENOL
     Dosage: 20 NG/KG, PER MIN
     Route: 042
  2. VELETRI [Suspect]
     Active Substance: EPOPROSTENOL
     Dosage: 6 NG/KG, PER MIN
     Route: 042
  3. OPSUMIT [Suspect]
     Active Substance: MACITENTAN
     Dosage: 10 MG, QD
     Route: 048
  4. OPSUMIT [Suspect]
     Active Substance: MACITENTAN
     Indication: PULMONARY ARTERIAL HYPERTENSION
     Dosage: 10 MG, QD
     Route: 048
     Dates: start: 20180606
  5. VELETRI [Suspect]
     Active Substance: EPOPROSTENOL
     Indication: PULMONARY ARTERIAL HYPERTENSION
     Dosage: 3 NG/KG, PER MIN
     Route: 042
  6. TYVASO [Concomitant]
     Active Substance: TREPROSTINIL
  7. OXYGEN. [Concomitant]
     Active Substance: OXYGEN
     Dosage: 8LPM WHEN ACTIVE, 4LPM AT NIGHT

REACTIONS (30)
  - Dermatitis contact [Unknown]
  - Arterial catheterisation [Unknown]
  - Adverse event [Unknown]
  - Swelling face [Unknown]
  - Nasopharyngitis [Not Recovered/Not Resolved]
  - Eye swelling [Unknown]
  - Hypoxia [Recovering/Resolving]
  - Catheter site vesicles [Unknown]
  - Continuous positive airway pressure [Unknown]
  - Headache [Unknown]
  - Catheter site pruritus [Unknown]
  - Skin disorder [Unknown]
  - Visual impairment [Unknown]
  - Oxygen saturation decreased [Recovering/Resolving]
  - Device dislocation [Unknown]
  - Device leakage [Unknown]
  - Catheter site haemorrhage [Unknown]
  - Dyspnoea [Not Recovered/Not Resolved]
  - Arthralgia [Unknown]
  - Pain in jaw [Not Recovered/Not Resolved]
  - Catheter site rash [Unknown]
  - Catheter site erythema [Unknown]
  - Catheter site pain [Unknown]
  - Vomiting [Unknown]
  - Flushing [Unknown]
  - Diarrhoea [Not Recovered/Not Resolved]
  - Nasal congestion [Not Recovered/Not Resolved]
  - Chills [Unknown]
  - Nausea [Unknown]
  - Therapeutic response decreased [Unknown]

NARRATIVE: CASE EVENT DATE: 20180630
